FAERS Safety Report 10227745 (Version 1)
Quarter: 2014Q2

REPORT INFORMATION
  Report Type: Report from Study
  Country: TN (occurrence: TN)
  Receive Date: 20140610
  Receipt Date: 20140610
  Transmission Date: 20141212
  Serious: Yes (Death)
  Sender: FDA-Public Use
  Company Number: TN-SA-2014SA073249

PATIENT
  Age: 78 Year
  Sex: Male

DRUGS (4)
  1. PLAVIX [Suspect]
     Indication: ACUTE CORONARY SYNDROME
     Dosage: DOSE: 75 (UNITS UNSPECIFIED)
     Route: 048
     Dates: start: 20140104
  2. ASPIRIN [Concomitant]
     Route: 048
  3. TAHOR [Concomitant]
     Route: 048
  4. CARDENSIEL [Concomitant]
     Route: 048

REACTIONS (4)
  - Prostate cancer [Fatal]
  - Pain [Fatal]
  - General physical health deterioration [Fatal]
  - Dyspnoea [Fatal]
